FAERS Safety Report 10201092 (Version 1)
Quarter: 2014Q2

REPORT INFORMATION
  Report Type: Spontaneous
  Country: US (occurrence: US)
  Receive Date: 20140528
  Receipt Date: 20140528
  Transmission Date: 20141212
  Serious: No
  Sender: FDA-Public Use
  Company Number: US-ASTRAZENECA-2014SE34376

PATIENT
  Age: 72 Year
  Sex: Female
  Weight: 119.7 kg

DRUGS (6)
  1. SYMBICORT [Suspect]
     Indication: CHRONIC OBSTRUCTIVE PULMONARY DISEASE
     Dosage: 160/4.5, 2 PUFFS BID
     Route: 055
     Dates: start: 20140513
  2. SYMBICORT [Suspect]
     Indication: ASTHMA
     Dosage: 160/4.5, 2 PUFFS BID
     Route: 055
     Dates: start: 20140513
  3. METOPROPOLOL TARTRATE [Suspect]
     Indication: CARDIAC DISORDER
     Route: 048
  4. METOPROPOLOL TARTRATE [Suspect]
     Indication: CARDIAC FAILURE CONGESTIVE
     Route: 048
  5. POTASSIUM CHLORIDE [Concomitant]
     Indication: BLOOD POTASSIUM DECREASED
  6. HYDROCHLOROTHYZIDE [Concomitant]
     Indication: BLOOD PRESSURE ABNORMAL
     Dates: start: 1988

REACTIONS (4)
  - Feeling abnormal [Not Recovered/Not Resolved]
  - Hypoaesthesia oral [Not Recovered/Not Resolved]
  - Rash [Not Recovered/Not Resolved]
  - Pruritus [Not Recovered/Not Resolved]
